FAERS Safety Report 5745431-2 (Version None)
Quarter: 2008Q2

REPORT INFORMATION
  Report Type: 
  Country: None (occurrence: None)
  Receive Date: 20080521
  Receipt Date: 20080516
  Transmission Date: 20081010
  Serious: Yes (Hospitalization)
  Sender: FDA-Public Use
  Company Number: FR-AVENTIS-200811801FR

PATIENT
  Age: 75 Year
  Sex: Male

DRUGS (8)
  1. FLAGYL [Suspect]
     Indication: RECTAL ABSCESS
     Route: 048
     Dates: start: 20070110, end: 20070415
  2. ASPEGIC 1000 [Suspect]
     Route: 048
     Dates: end: 20070413
  3. ADANCOR [Suspect]
     Indication: ANGINA PECTORIS
     Route: 048
     Dates: end: 20070412
  4. CARDENSIEL [Concomitant]
     Route: 048
     Dates: end: 20070413
  5. LASILIX                            /00032601/ [Concomitant]
     Route: 048
  6. DIFFU K [Concomitant]
     Route: 048
  7. PLAVIX [Concomitant]
     Indication: MYOCARDIAL INFARCTION
     Route: 048
  8. CRESTOR [Concomitant]
     Route: 048

REACTIONS (1)
  - HEPATITIS CHOLESTATIC [None]
